FAERS Safety Report 8967632 (Version 1)
Quarter: 2012Q4

REPORT INFORMATION
  Report Type: Spontaneous
  Country: US (occurrence: None)
  Receive Date: 20121204
  Receipt Date: 20121204
  Transmission Date: 20130627
  Serious: Yes (Hospitalization)
  Sender: FDA-Public Use
  Company Number: UTC-025965

PATIENT
  Age: 69 Year
  Sex: Female

DRUGS (14)
  1. REMODULIN (INJECTION FOR INFUSION) (TREPROSTINIL SODIUM) [Suspect]
     Indication: PULMONARY ARTERIAL HYPERTENSION
  2. REMODULIN (INJECTION FOR INFUSION) (TREPROSTINIL SODIUM) [Suspect]
     Indication: PULMONARY ARTERIAL HYPERTENSION
  3. ASPIRIN (ACETYLSALICYLIC ACID) [Concomitant]
  4. ATENOLOL [Concomitant]
  5. AMLODIPINE [Concomitant]
  6. ENALAPRIL [Concomitant]
  7. TIOTROPIUM [Concomitant]
  8. GLIPIZIDE [Concomitant]
  9. GALENIC (FLUTICASONE/SALMETEROL) [Concomitant]
  10. LASIX (FUROSEMIDE) [Concomitant]
  11. DOBUTAMINE(INJECTION FOR INFUSION) [Concomitant]
  12. DOBUTAMINE (INJECTION FOR INFUSION) [Concomitant]
  13. PHENYLEPHRINE (INJECTION FOR INFUSION) [Concomitant]
  14. ADENOSINE (INJECTION FOR INFUSION) [Concomitant]

REACTIONS (6)
  - Stress cardiomyopathy [None]
  - Emotional disorder [None]
  - Injury [None]
  - Hypotension [None]
  - Cardiogenic shock [None]
  - Coronary artery disease [None]
